FAERS Safety Report 16472976 (Version 14)
Quarter: 2025Q3

REPORT INFORMATION
  Report Type: Spontaneous
  Country: EU (occurrence: EU)
  Receive Date: 20190625
  Receipt Date: 20250801
  Transmission Date: 20251021
  Serious: Yes (Hospitalization, Disabling, Other)
  Sender: AUROBINDO
  Company Number: EU-MENARINI-PL-MEN-066879

PATIENT
  Age: 56 Year
  Sex: Female

DRUGS (24)
  1. FLUOXETINE [Interacting]
     Active Substance: FLUOXETINE HYDROCHLORIDE
     Indication: Depression
     Route: 065
  2. SERTRALINE [Interacting]
     Active Substance: SERTRALINE HYDROCHLORIDE
     Indication: Depression
     Dosage: 100 MILLIGRAM, ONCE A DAY,IN THE MORNING
     Route: 065
  3. SERTRALINE [Interacting]
     Active Substance: SERTRALINE HYDROCHLORIDE
     Route: 065
  4. TRAMADOL [Suspect]
     Active Substance: TRAMADOL
     Indication: Product used for unknown indication
     Dosage: 300 MILLIGRAM, ONCE A DAY
     Route: 065
  5. ACETAMINOPHEN [Suspect]
     Active Substance: ACETAMINOPHEN
     Indication: Arthralgia
     Dosage: 2600 MILLIGRAM, ONCE A DAY
     Route: 065
  6. OMEPRAZOLE [Interacting]
     Active Substance: OMEPRAZOLE
     Indication: Back pain
     Dosage: 40 MILLIGRAM, ONCE A DAY
     Route: 065
  7. OMEPRAZOLE [Interacting]
     Active Substance: OMEPRAZOLE
     Indication: Spinal pain
  8. CELECOXIB [Interacting]
     Active Substance: CELECOXIB
     Indication: Spinal pain
     Dosage: 400 MILLIGRAM, ONCE A DAY
     Route: 065
  9. CELECOXIB [Interacting]
     Active Substance: CELECOXIB
     Indication: Back pain
  10. CIPROFLOXACIN [Suspect]
     Active Substance: CIPROFLOXACIN
     Indication: Bronchitis
     Dosage: 1000 MILLIGRAM, ONCE A DAY
     Route: 048
  11. ENALAPRIL MALEATE [Interacting]
     Active Substance: ENALAPRIL MALEATE
     Indication: Hypertension
     Dosage: 20 MILLIGRAM, ONCE A DAY
     Route: 065
  12. HYDROXYZINE HYDROCHLORIDE [Interacting]
     Active Substance: HYDROXYZINE HYDROCHLORIDE
     Indication: Insomnia
     Dosage: 25 MILLIGRAM, ONCE A DAY (IN THE EVENING)
     Route: 065
  13. HYDROXYZINE HYDROCHLORIDE [Interacting]
     Active Substance: HYDROXYZINE HYDROCHLORIDE
     Indication: Initial insomnia
  14. HYDROXYZINE HYDROCHLORIDE [Interacting]
     Active Substance: HYDROXYZINE HYDROCHLORIDE
     Indication: Depression
  15. INDAPAMIDE [Interacting]
     Active Substance: INDAPAMIDE
     Indication: Hypertension
     Dosage: 1.5 MILLIGRAM, ONCE A DAY
     Route: 065
  16. TRAZODONE [Suspect]
     Active Substance: TRAZODONE HYDROCHLORIDE
     Indication: Insomnia
     Route: 065
  17. KETOPROFEN [Interacting]
     Active Substance: KETOPROFEN
     Indication: Pain
     Dosage: 300 MILLIGRAM, 3 TIMES A DAY
     Route: 048
  18. INDAPAMIDE [Interacting]
     Active Substance: INDAPAMIDE
     Indication: Hypertension
     Dosage: 1.5 MILLIGRAM, ONCE A DAY
     Route: 065
  19. Ferrum [Concomitant]
     Indication: Product used for unknown indication
     Route: 065
  20. THIOCTIC ACID [Concomitant]
     Active Substance: THIOCTIC ACID
     Indication: Pain
     Dosage: 600 MILLIGRAM, ONCE A DAY
     Route: 065
  21. ZOFENOPRIL [Concomitant]
     Active Substance: ZOFENOPRIL
     Indication: Hypertension
     Route: 065
  22. VORTIOXETINE [Concomitant]
     Active Substance: VORTIOXETINE
     Indication: Depression
     Route: 065
  23. BENFOTIAMINE [Concomitant]
     Active Substance: BENFOTIAMINE
     Indication: Pain
     Dosage: 300 MILLIGRAM, ONCE A DAY
     Route: 065
  24. PREGABALIN [Concomitant]
     Active Substance: PREGABALIN
     Indication: Pain
     Dosage: 150 MILLIGRAM, TWO TIMES A DAY
     Route: 065

REACTIONS (13)
  - Serotonin syndrome [Unknown]
  - Upper gastrointestinal haemorrhage [Unknown]
  - Burning mouth syndrome [Recovered/Resolved]
  - Iron deficiency [Recovered/Resolved]
  - Oral discomfort [Recovered/Resolved]
  - Dysphagia [Recovered/Resolved]
  - Hypophagia [Recovered/Resolved]
  - Product use in unapproved indication [Unknown]
  - Pain [Recovered/Resolved]
  - Back pain [Recovered/Resolved]
  - Drug interaction [Recovered/Resolved]
  - Drug ineffective [Unknown]
  - Multiple drug therapy [Recovered/Resolved]
